FAERS Safety Report 26121065 (Version 1)
Quarter: 2025Q4

REPORT INFORMATION
  Report Type: Spontaneous
  Country: US (occurrence: None)
  Receive Date: 20251203
  Receipt Date: 20251203
  Transmission Date: 20260118
  Serious: Yes (Hospitalization)
  Sender: FDA-CTU
  Company Number: None

PATIENT
  Sex: Female

DRUGS (1)
  1. TOBRAMYCIN [Suspect]
     Active Substance: TOBRAMYCIN
     Indication: Bronchiectasis
     Dosage: OTHER QUANTITY : 1 VIAL VIA NEBULIZER;?OTHER FREQUENCY : EVERY AM AND NIGHT AT BEDTIME;?OTHER ROUTE : NEBULIZER;?
     Route: 050
     Dates: start: 20250823

REACTIONS (7)
  - Fatigue [None]
  - Sleep disorder [None]
  - Loss of personal independence in daily activities [None]
  - Headache [None]
  - Pyrexia [None]
  - Dyspnoea [None]
  - Productive cough [None]
